FAERS Safety Report 5279000-8 (Version None)
Quarter: 2007Q1

REPORT INFORMATION
  Report Type: 
  Country: None (occurrence: None)
  Receive Date: 20070328
  Receipt Date: 20061005
  Transmission Date: 20070707
  Serious: No
  Sender: FDA-Public Use
  Company Number: US-AMGEN-KDL195860

PATIENT
  Age: 50 Year
  Sex: Female

DRUGS (7)
  1. NEULASTA [Suspect]
     Indication: CHEMOTHERAPY
     Route: 058
     Dates: start: 20060912
  2. ATIVAN [Concomitant]
     Route: 065
  3. DEXAMETHASONE [Concomitant]
     Route: 065
  4. ANZEMET [Concomitant]
     Route: 065
  5. COMPAZINE [Concomitant]
     Route: 065
  6. DOXORUBICIN HCL [Concomitant]
     Route: 065
  7. CYCLOPHOSPHAMIDE [Concomitant]
     Route: 065

REACTIONS (3)
  - BACK PAIN [None]
  - DYSPNOEA [None]
  - TACHYCARDIA [None]
